FAERS Safety Report 19209737 (Version 2)
Quarter: 2021Q2

REPORT INFORMATION
  Report Type: Report from Study
  Country: US (occurrence: US)
  Receive Date: 20210503
  Receipt Date: 20210518
  Transmission Date: 20210717
  Serious: Yes (Other)
  Sender: FDA-Public Use
  Company Number: US-GILEAD-2021-0527288

PATIENT
  Age: 46 Year
  Sex: Female

DRUGS (5)
  1. CISATRACURIUM. [Concomitant]
     Active Substance: CISATRACURIUM
  2. NITRIC OXIDE. [Concomitant]
     Active Substance: NITRIC OXIDE
  3. REMDESIVIR. [Suspect]
     Active Substance: REMDESIVIR
     Indication: COVID-19
     Dosage: UNK
     Route: 065
  4. CHLORHEXIDINE GLUCONATE. [Concomitant]
     Active Substance: CHLORHEXIDINE GLUCONATE
  5. TOCILIZUMAB. [Concomitant]
     Active Substance: TOCILIZUMAB

REACTIONS (1)
  - Acquired macroglossia [Recovering/Resolving]
